FAERS Safety Report 7939745-5 (Version None)
Quarter: 2011Q4

REPORT INFORMATION
  Report Type: 
  Country: None (occurrence: None)
  Receive Date: 20111125
  Receipt Date: 20111118
  Transmission Date: 20120403
  Serious: Yes (Other)
  Sender: FDA-Public Use
  Company Number: PHEH2010US01810

PATIENT
  Sex: Male

DRUGS (18)
  1. FENTANYL [Concomitant]
  2. PEN-VEE K [Concomitant]
  3. ALLOPURINOL [Concomitant]
  4. LISINOPRIL [Concomitant]
  5. ATENOLOL [Concomitant]
  6. DARVOCET-N 50 [Concomitant]
  7. ACETAMINOPHEN [Concomitant]
  8. ISOSORBIDE DINITRATE [Concomitant]
  9. AMLODIPINE [Concomitant]
  10. PROCHLORPERAZINE [Concomitant]
  11. AREDIA [Suspect]
     Indication: MULTIPLE MYELOMA
  12. MELPHALAN HYDROCHLORIDE [Concomitant]
  13. FOLATE SODIUM [Concomitant]
  14. FUROSEMIDE [Concomitant]
  15. SIMVASTATIN [Concomitant]
  16. COUMADIN [Concomitant]
  17. ZOMETA [Suspect]
     Indication: MULTIPLE MYELOMA
  18. PREDNISONE TAB [Concomitant]

REACTIONS (97)
  - FALL [None]
  - HYPERCALCAEMIA [None]
  - ABDOMINAL PAIN [None]
  - TINNITUS [None]
  - ROTATOR CUFF SYNDROME [None]
  - AORTIC ARTERIOSCLEROSIS [None]
  - HAEMOPTYSIS [None]
  - DUODENITIS [None]
  - RENAL FAILURE CHRONIC [None]
  - HYPERTENSION [None]
  - PERSONALITY CHANGE [None]
  - HYPOCALCAEMIA [None]
  - GASTROOESOPHAGEAL REFLUX DISEASE [None]
  - LYMPHOMA [None]
  - ANAEMIA [None]
  - BACK PAIN [None]
  - OSTEOPENIA [None]
  - MELAENA [None]
  - SPLENOMEGALY [None]
  - DEMENTIA [None]
  - CORONARY ARTERY DISEASE [None]
  - CONFUSIONAL STATE [None]
  - WEIGHT DECREASED [None]
  - BALANCE DISORDER [None]
  - HAEMORRHOIDS [None]
  - CONTUSION [None]
  - GENERAL PHYSICAL HEALTH DETERIORATION [None]
  - SINUS DISORDER [None]
  - TOOTH ABSCESS [None]
  - INTERVERTEBRAL DISC DEGENERATION [None]
  - DIVERTICULUM INTESTINAL [None]
  - HEPATIC STEATOSIS [None]
  - HYPERLIPIDAEMIA [None]
  - COORDINATION ABNORMAL [None]
  - ARTHRITIS [None]
  - FATIGUE [None]
  - SOMNOLENCE [None]
  - VOMITING [None]
  - OSTEONECROSIS OF JAW [None]
  - PYREXIA [None]
  - HERPES ZOSTER [None]
  - CONSTIPATION [None]
  - EXPOSED BONE IN JAW [None]
  - ATELECTASIS [None]
  - GASTROINTESTINAL HAEMORRHAGE [None]
  - OEDEMA [None]
  - LEUKOCYTOSIS [None]
  - PNEUMONIA [None]
  - CHEST PAIN [None]
  - PRIMARY SEQUESTRUM [None]
  - THROMBOCYTOPENIA [None]
  - ECCHYMOSIS [None]
  - HIATUS HERNIA [None]
  - DEPRESSION [None]
  - FACET JOINT SYNDROME [None]
  - PURULENT DISCHARGE [None]
  - GOUT [None]
  - HEADACHE [None]
  - DYSLIPIDAEMIA [None]
  - ANXIETY [None]
  - OPEN WOUND [None]
  - LUNG NEOPLASM [None]
  - UPPER RESPIRATORY TRACT INFECTION [None]
  - GASTROENTERITIS [None]
  - CEREBRAL ATROPHY [None]
  - RENAL CYST [None]
  - SICK SINUS SYNDROME [None]
  - POLLAKIURIA [None]
  - SINUS BRADYCARDIA [None]
  - CEREBRAL VENTRICLE DILATATION [None]
  - ENCEPHALOMALACIA [None]
  - PAIN [None]
  - SUBDURAL HAEMATOMA [None]
  - LOCAL SWELLING [None]
  - SWELLING [None]
  - SKIN LESION [None]
  - NEURALGIA [None]
  - SUBARACHNOID HAEMORRHAGE [None]
  - CHRONIC OBSTRUCTIVE PULMONARY DISEASE [None]
  - HYPERURICAEMIA [None]
  - OSTEOMYELITIS [None]
  - PLEURAL EFFUSION [None]
  - OEDEMA PERIPHERAL [None]
  - AMNESIA [None]
  - ANHEDONIA [None]
  - HEAD INJURY [None]
  - PROSTATE CANCER [None]
  - SPINAL OSTEOARTHRITIS [None]
  - DYSPNOEA [None]
  - LYMPHADENOPATHY [None]
  - MITRAL VALVE INCOMPETENCE [None]
  - DIZZINESS [None]
  - DYSPHONIA [None]
  - NAUSEA [None]
  - LETHARGY [None]
  - NOCTURIA [None]
  - HYDROCEPHALUS [None]
